FAERS Safety Report 7531215-1 (Version None)
Quarter: 2011Q2

REPORT INFORMATION
  Report Type: 
  Country: None (occurrence: None)
  Receive Date: 20110608
  Receipt Date: 20110526
  Transmission Date: 20111010
  Serious: Yes (Hospitalization, Other)
  Sender: FDA-Public Use
  Company Number: US-BAYER-201029488NA

PATIENT
  Age: 21 Year
  Sex: Female
  Weight: 87.982 kg

DRUGS (13)
  1. DROSPIRENONE AND ETHINYL ESTRADIOL [Suspect]
     Indication: ACNE
     Dosage: UNK
  2. ALLEGRA [Concomitant]
     Dosage: 180 MG, QD
  3. ZYRTEC [Concomitant]
     Dosage: 10 MG, OM
  4. OMEPRAZOLE [Concomitant]
     Dosage: 20 MG, BID
  5. FLONASE [Concomitant]
     Dosage: 50 ?G, UNK
  6. SINGULAIR [Concomitant]
     Dosage: 10 MG, QD
  7. YASMIN [Suspect]
     Indication: ACNE
     Dosage: UNK MG, UNK
  8. CIPROFLOXACIN HCL [Concomitant]
     Dosage: 250 MG, BID
  9. BIAXIN [Concomitant]
     Dosage: 500 MG, BID
  10. YAZ [Suspect]
     Indication: ACNE
     Dosage: UNK MG, UNK
     Dates: start: 20020101, end: 20090101
  11. CONCERTA [Concomitant]
  12. ADVAIR DISKUS 100/50 [Concomitant]
  13. ZITHROMAX [Concomitant]
     Indication: SINUSITIS

REACTIONS (4)
  - CHOLELITHIASIS [None]
  - ABDOMINAL PAIN UPPER [None]
  - CHOLECYSTITIS CHRONIC [None]
  - CHOLESTEROSIS [None]
